FAERS Safety Report 5535849-5 (Version None)
Quarter: 2007Q4

REPORT INFORMATION
  Report Type: 
  Country: None (occurrence: None)
  Receive Date: 20071120
  Receipt Date: 20070829
  Transmission Date: 20080405
  Serious: No
  Sender: FDA-Public Use
  Company Number: WAES 0708USA05432

PATIENT
  Age: 45 Year
  Sex: Male

DRUGS (2)
  1. JANUVIA [Suspect]
     Indication: DIABETES MELLITUS
     Dosage: 100 MG DAILY PO
     Route: 048
  2. SINGULAIR [Suspect]
     Dosage: PO
     Route: 048

REACTIONS (2)
  - RASH [None]
  - RASH GENERALISED [None]
